FAERS Safety Report 23067164 (Version 4)
Quarter: 2023Q4

REPORT INFORMATION
  Report Type: Spontaneous
  Country: US (occurrence: US)
  Receive Date: 20231016
  Receipt Date: 20231229
  Transmission Date: 20240110
  Serious: Yes (Other)
  Sender: FDA-Public Use
  Company Number: US-BRISTOL-MYERS SQUIBB COMPANY-2023-145004

PATIENT
  Age: 71 Year
  Sex: Female

DRUGS (1)
  1. LENALIDOMIDE [Suspect]
     Active Substance: LENALIDOMIDE
     Indication: Monoclonal gammopathy
     Dosage: TAKE 1 CAPSULE BY MOUTH EVERY DAY ON DAYS 1-21 THEN OFF FOR 7 DAYS
     Route: 048
     Dates: start: 20221205

REACTIONS (4)
  - Diarrhoea [Not Recovered/Not Resolved]
  - Off label use [Unknown]
  - Peripheral swelling [Recovering/Resolving]
  - Muscle spasms [Not Recovered/Not Resolved]
